FAERS Safety Report 8622251-2 (Version None)
Quarter: 2012Q3

REPORT INFORMATION
  Report Type: 
  Country: None (occurrence: None)
  Receive Date: 20120827
  Receipt Date: 20120809
  Transmission Date: 20120928
  Serious: No
  Sender: FDA-Public Use
  Company Number: US-009507513-1207USA000278

PATIENT

DRUGS (3)
  1. LISINOPRIL [Concomitant]
  2. SEROQUEL [Concomitant]
  3. PEG-INTRON [Suspect]
     Indication: HEPATITIS C
     Dosage: 150 MICROGRAM, QW

REACTIONS (8)
  - PNEUMONIA [None]
  - MALAISE [None]
  - ABDOMINAL DISCOMFORT [None]
  - BRONCHITIS [None]
  - NASOPHARYNGITIS [None]
  - PRODUCT QUALITY ISSUE [None]
  - VOMITING [None]
  - COUGH [None]
